FAERS Safety Report 4465640-2 (Version None)
Quarter: 2004Q3

REPORT INFORMATION
  Report Type: 
  Country: None (occurrence: None)
  Receive Date: 20040930
  Receipt Date: 20040913
  Transmission Date: 20050211
  Serious: Yes (Hospitalization)
  Sender: FDA-Public Use
  Company Number: DSA_24991_2004

PATIENT
  Age: 93 Year
  Sex: Female

DRUGS (6)
  1. ENALAPRIL MALEATE [Suspect]
     Indication: HYPERTENSION
     Dosage: 5 MG QD PO
     Route: 048
     Dates: start: 20040830, end: 20040831
  2. LANOXIN [Concomitant]
  3. LASIX [Concomitant]
  4. NITRODERM [Concomitant]
  5. PANTOPRAZOLE [Concomitant]
  6. COUMADIN [Concomitant]

REACTIONS (4)
  - DYSPHAGIA [None]
  - FACE OEDEMA [None]
  - TONGUE DISCOLOURATION [None]
  - TONGUE OEDEMA [None]
